FAERS Safety Report 8941659 (Version 2)
Quarter: 2013Q1

REPORT INFORMATION
  Report Type: Spontaneous
  Country: US (occurrence: US)
  Receive Date: 20121203
  Receipt Date: 20130228
  Transmission Date: 20140127
  Serious: Yes (Other)
  Sender: FDA-Public Use
  Company Number: US-PFIZER INC-2012302140

PATIENT
  Age: 51 Year
  Sex: Female
  Weight: 90.7 kg

DRUGS (1)
  1. LYRICA [Suspect]
     Indication: FIBROMYALGIA
     Dosage: 50 MG, 2X/DAY
     Route: 048
     Dates: start: 20121031, end: 201211

REACTIONS (12)
  - Fall [Unknown]
  - Impaired driving ability [Unknown]
  - Dehydration [Recovered/Resolved]
  - Gingival blister [Recovered/Resolved]
  - Gingival inflammation [Recovered/Resolved]
  - Eating disorder [Recovered/Resolved]
  - Hyperhidrosis [Recovered/Resolved]
  - Hot flush [Unknown]
  - Thirst [Recovered/Resolved]
  - Dizziness [Recovered/Resolved]
  - Gait disturbance [Recovered/Resolved]
  - Drug ineffective [Unknown]
